FAERS Safety Report 25179687 (Version 2)
Quarter: 2025Q2

REPORT INFORMATION
  Report Type: Spontaneous
  Country: FR (occurrence: FR)
  Receive Date: 20250409
  Receipt Date: 20250417
  Transmission Date: 20250717
  Serious: Yes (Other)
  Sender: GLAXOSMITHKLINE
  Company Number: None

PATIENT

DRUGS (8)
  1. AMOXICILLIN [Suspect]
     Active Substance: AMOXICILLIN
     Indication: Infection
     Dosage: 1000 MG, QD(500 MG, BID)
     Route: 065
     Dates: start: 20190110
  2. VALACYCLOVIR HYDROCHLORIDE [Suspect]
     Active Substance: VALACYCLOVIR HYDROCHLORIDE
     Indication: Viral infection
     Dosage: 1000 MG, QD (500 MG, BID)
     Route: 048
     Dates: start: 201803
  3. NEORAL [Suspect]
     Active Substance: CYCLOSPORINE
     Indication: Bone marrow transplant
     Dosage: 280 MG, QD(140 MG, BID )
     Route: 042
     Dates: start: 20190111
  4. NICARDIPINE HYDROCHLORIDE [Suspect]
     Active Substance: NICARDIPINE HYDROCHLORIDE
     Indication: Product used for unknown indication
     Route: 065
  5. PRAVASTATIN SODIUM [Suspect]
     Active Substance: PRAVASTATIN SODIUM
     Indication: Hypocholesterolaemia
     Dosage: 40 MG, QD
     Route: 065
  6. CELLCEPT [Suspect]
     Active Substance: MYCOPHENOLATE MOFETIL
     Indication: Bone marrow transplant
     Route: 048
     Dates: start: 201901
  7. LITHIUM CARBONATE [Suspect]
     Active Substance: LITHIUM CARBONATE
     Indication: Depression
     Dosage: 2 DF, QD
     Route: 048
     Dates: start: 2017, end: 20190215
  8. ETHYL LOFLAZEPATE [Suspect]
     Active Substance: ETHYL LOFLAZEPATE
     Indication: Depression
     Dosage: 3 DF, QD (2 DF IN THE MORNING 1 DF IN THE EVENING)
     Route: 048
     Dates: start: 2017, end: 20190215

REACTIONS (13)
  - Balance disorder [Not Recovered/Not Resolved]
  - Choking [Recovered/Resolved]
  - Confusional state [Recovered/Resolved]
  - Decreased appetite [Recovered/Resolved]
  - Alexithymia [Not Recovered/Not Resolved]
  - Movement disorder [Recovered/Resolved]
  - Fatigue [Not Recovered/Not Resolved]
  - Incontinence [Recovered/Resolved]
  - Aphasia [Recovered/Resolved]
  - Depression [Not Recovered/Not Resolved]
  - Renal failure [Not Recovered/Not Resolved]
  - Memory impairment [Unknown]
  - Feeding disorder [Unknown]

NARRATIVE: CASE EVENT DATE: 20190101
